FAERS Safety Report 22116342 (Version 1)
Quarter: 2023Q1

REPORT INFORMATION
  Report Type: Report from Study
  Country: US (occurrence: US)
  Receive Date: 20230320
  Receipt Date: 20230320
  Transmission Date: 20230418
  Serious: Yes (Other)
  Sender: FDA-Public Use
  Company Number: US-TAKEDA-2022TUS020417

PATIENT
  Age: 35 Year
  Sex: Female

DRUGS (1)
  1. DEXLANSOPRAZOLE [Suspect]
     Active Substance: DEXLANSOPRAZOLE
     Indication: Product used for unknown indication
     Dosage: 60 MILLIGRAM, QD
     Route: 065

REACTIONS (4)
  - Breast cancer [Unknown]
  - Withdrawal syndrome [Unknown]
  - Therapy interrupted [Unknown]
  - Anxiety [Unknown]

NARRATIVE: CASE EVENT DATE: 20220324
